FAERS Safety Report 4349323-5 (Version None)
Quarter: 2004Q2

REPORT INFORMATION
  Report Type: 
  Country: None (occurrence: None)
  Receive Date: 20040426
  Receipt Date: 20040413
  Transmission Date: 20050107
  Serious: Yes (Disabling, Other)
  Sender: FDA-Public Use
  Company Number: 2004-04-0279

PATIENT
  Age: 3 Year
  Sex: Female

DRUGS (6)
  1. CLARITIN [Suspect]
     Indication: COUGH
     Dosage: 2.5 MG/DAY ORAL
     Route: 048
     Dates: start: 20040329, end: 20040401
  2. CLARITIN [Suspect]
     Indication: NASAL CONGESTION
     Dosage: 2.5 MG/DAY ORAL
     Route: 048
     Dates: start: 20040329, end: 20040401
  3. MAXILASE [Concomitant]
  4. AMBROXOL [Concomitant]
  5. BUDESONIDE [Concomitant]
  6. ACETAMINOPHEN [Concomitant]

REACTIONS (2)
  - DYSPHEMIA [None]
  - PYREXIA [None]
